FAERS Safety Report 23461136 (Version 1)
Quarter: 2024Q1

REPORT INFORMATION
  Report Type: Spontaneous
  Country: GB (occurrence: GB)
  Receive Date: 20240131
  Receipt Date: 20240131
  Transmission Date: 20240410
  Serious: Yes (Hospitalization, Other)
  Sender: FDA-Public Use
  Company Number: GB-002147023-NVSC2024GB020799

PATIENT
  Age: 18 Year
  Sex: Male

DRUGS (1)
  1. TEGRETOL [Suspect]
     Active Substance: CARBAMAZEPINE
     Indication: Product used for unknown indication
     Dosage: 200 MG (TWO IN THE MORNING AND TWO IN THE EVENING)
     Route: 065

REACTIONS (2)
  - Seizure [Recovered/Resolved]
  - Product availability issue [Unknown]
